FAERS Safety Report 5775052-7 (Version None)
Quarter: 2008Q2

REPORT INFORMATION
  Report Type: 
  Country: None (occurrence: None)
  Receive Date: 20080617
  Receipt Date: 20080617
  Transmission Date: 20081010
  Serious: Yes (Hospitalization)
  Sender: FDA-Public Use
  Company Number: None

PATIENT
  Age: 61 Year
  Sex: Female

DRUGS (1)
  1. HEPARIN [Suspect]
     Indication: HAEMODIALYSIS
     Dosage: 2000 UNITS 1X
     Dates: start: 20080612, end: 20080612

REACTIONS (3)
  - DYSPNOEA [None]
  - RESPIRATORY DISTRESS [None]
  - SIMILAR REACTION ON PREVIOUS EXPOSURE TO DRUG [None]
